FAERS Safety Report 21681253 (Version 1)
Quarter: 2022Q4

REPORT INFORMATION
  Report Type: Spontaneous
  Country: PL (occurrence: PL)
  Receive Date: 20221205
  Receipt Date: 20221205
  Transmission Date: 20230113
  Serious: Yes (Other)
  Sender: FDA-Public Use
  Company Number: PL-SUN PHARMACEUTICAL INDUSTRIES LTD-2022R1-367164

PATIENT
  Age: 91 Year
  Sex: Female

DRUGS (7)
  1. DAPAGLIFLOZIN [Suspect]
     Active Substance: DAPAGLIFLOZIN
     Indication: Product used for unknown indication
     Dosage: 10 MILLIGRAM
     Route: 065
  2. VALSARTAN [Suspect]
     Active Substance: VALSARTAN
     Indication: Product used for unknown indication
     Dosage: 26 MILLIGRAM
     Route: 065
  3. ASPIRIN [Concomitant]
     Active Substance: ASPIRIN
     Indication: Product used for unknown indication
     Dosage: 75 MILLIGRAM
     Route: 065
  4. ATORVASTATIN [Concomitant]
     Active Substance: ATORVASTATIN
     Indication: Product used for unknown indication
     Dosage: 20 MILLIGRAM
     Route: 065
  5. BISOPROLOL [Concomitant]
     Active Substance: BISOPROLOL
     Indication: Product used for unknown indication
     Dosage: 2.5 MILLIGRAM
     Route: 065
  6. EPLERENONE [Concomitant]
     Active Substance: EPLERENONE
     Indication: Product used for unknown indication
     Dosage: 25 MILLIGRAM
     Route: 065
  7. SACUBITRIL [Concomitant]
     Active Substance: SACUBITRIL
     Indication: Product used for unknown indication
     Dosage: 24 MILLIGRAM
     Route: 065

REACTIONS (2)
  - Hyperkalaemia [Unknown]
  - Renal impairment [Unknown]
